FAERS Safety Report 8689767 (Version 3)
Quarter: 2013Q3

REPORT INFORMATION
  Report Type: Spontaneous
  Country: US (occurrence: US)
  Receive Date: 20120727
  Receipt Date: 20130701
  Transmission Date: 20140515
  Serious: No
  Sender: FDA-Public Use
  Company Number: US-ASTRAZENECA-2012SE08368

PATIENT
  Age: 570 Month
  Sex: Female
  Weight: 54.4 kg

DRUGS (3)
  1. SEROQUEL XR [Suspect]
     Indication: NERVOUSNESS
     Route: 048
  2. SEROQUEL XR [Suspect]
     Indication: NERVOUSNESS
     Route: 048
  3. ABREVA [Concomitant]

REACTIONS (12)
  - Joint injury [Unknown]
  - Panic attack [Unknown]
  - Malaise [Unknown]
  - Dental caries [Unknown]
  - Toothache [Unknown]
  - Oral pain [Unknown]
  - Weight increased [Unknown]
  - Swelling face [Unknown]
  - Drug effect incomplete [Unknown]
  - Intentional drug misuse [Unknown]
  - Off label use [Unknown]
  - Drug dose omission [Unknown]
